FAERS Safety Report 7264108-8 (Version None)
Quarter: 2011Q1

REPORT INFORMATION
  Report Type: 
  Country: None (occurrence: None)
  Receive Date: 20110130
  Receipt Date: 20110120
  Transmission Date: 20110831
  Serious: Yes (Hospitalization, Other)
  Sender: FDA-Public Use
  Company Number: JP-BRISTOL-MYERS SQUIBB COMPANY-15328719

PATIENT
  Age: 63 Year
  Sex: Male

DRUGS (5)
  1. BASEN [Concomitant]
     Route: 048
     Dates: start: 20100601, end: 20100801
  2. AMARYL [Concomitant]
     Indication: HYPOGLYCAEMIA
     Route: 048
     Dates: start: 20070515
  3. BARACLUDE [Suspect]
     Indication: HEPATITIS B
     Dosage: 15-MAY-2007
     Route: 048
     Dates: start: 20070515
  4. METFORMIN HCL [Concomitant]
     Indication: HYPOGLYCAEMIA
     Route: 048
     Dates: start: 20070515
  5. HEPSERA [Concomitant]
     Route: 048
     Dates: start: 20100916

REACTIONS (4)
  - BILE DUCT CANCER [None]
  - HEPATITIS B DNA INCREASED [None]
  - HEPATITIS [None]
  - DIABETES MELLITUS [None]
